FAERS Safety Report 24375114 (Version 3)
Quarter: 2024Q4

REPORT INFORMATION
  Report Type: Report from Study
  Country: GR (occurrence: GR)
  Receive Date: 20240928
  Receipt Date: 20241018
  Transmission Date: 20250115
  Serious: Yes (Death, Life-Threatening, Other)
  Sender: ABBVIE
  Company Number: GR-ABBVIE-5576982

PATIENT
  Age: 73 Year
  Sex: Male

DRUGS (6)
  1. VENETOCLAX [Suspect]
     Active Substance: VENETOCLAX
     Indication: Acute myeloid leukaemia
     Route: 048
     Dates: start: 20230810, end: 20240325
  2. CRESEMBA [Concomitant]
     Active Substance: ISAVUCONAZONIUM SULFATE
     Indication: Antifungal prophylaxis
     Route: 048
     Dates: start: 20230808
  3. AZACITIDINE [Suspect]
     Active Substance: AZACITIDINE
     Indication: Acute myeloid leukaemia
     Route: 058
     Dates: start: 20230810, end: 20240325
  4. DECITABINE [Concomitant]
     Active Substance: DECITABINE
     Indication: Acute myeloid leukaemia
     Route: 042
     Dates: start: 20230921, end: 20230925
  5. DECITABINE [Concomitant]
     Active Substance: DECITABINE
     Indication: Acute myeloid leukaemia
     Route: 042
     Dates: start: 20231019, end: 20231023
  6. DECITABINE [Concomitant]
     Active Substance: DECITABINE
     Indication: Acute myeloid leukaemia
     Route: 042
     Dates: start: 20230822, end: 20230826

REACTIONS (4)
  - Cardiac arrest [Fatal]
  - Clostridium difficile infection [Recovered/Resolved]
  - Arthritis [Recovered/Resolved]
  - Diarrhoea [Recovered/Resolved]

NARRATIVE: CASE EVENT DATE: 20231017
